FAERS Safety Report 5195384-3 (Version None)
Quarter: 2006Q4

REPORT INFORMATION
  Report Type: 
  Country: None (occurrence: None)
  Receive Date: 20061229
  Receipt Date: 20061219
  Transmission Date: 20070319
  Serious: Yes (Hospitalization, Other)
  Sender: FDA-Public Use
  Company Number: US-PFIZER INC-2006155449

PATIENT
  Sex: Female
  Weight: 72.1 kg

DRUGS (5)
  1. LYRICA [Suspect]
     Indication: BURNING SENSATION
     Route: 048
     Dates: start: 20060101, end: 20061201
  2. TOPROL-XL [Concomitant]
  3. ATACAND [Concomitant]
  4. PLAVIX [Concomitant]
  5. NORVASC [Concomitant]

REACTIONS (5)
  - ANOREXIA [None]
  - FATIGUE [None]
  - NAUSEA [None]
  - VISION BLURRED [None]
  - WEIGHT DECREASED [None]
